FAERS Safety Report 6563000-1 (Version None)
Quarter: 2010Q1

REPORT INFORMATION
  Report Type: 
  Country: None (occurrence: None)
  Receive Date: 20100130
  Receipt Date: 20091130
  Transmission Date: 20100710
  Serious: No
  Sender: FDA-Public Use
  Company Number: US-ABBOTT-09P-163-0611897-00

PATIENT
  Sex: Female
  Weight: 66.738 kg

DRUGS (5)
  1. HUMIRA [Suspect]
     Indication: RHEUMATOID ARTHRITIS
     Route: 058
     Dates: start: 20080801, end: 20090101
  2. HUMIRA [Suspect]
     Indication: RHEUMATOID ARTHRITIS
     Route: 058
     Dates: start: 20090101, end: 20091112
  3. MOBIC [Concomitant]
     Indication: RHEUMATOID ARTHRITIS
     Dosage: UNKNOWN
  4. FOLIC ACID [Concomitant]
     Indication: RHEUMATOID ARTHRITIS
     Dosage: UNKNOWN
  5. METHOTREXATE [Concomitant]
     Indication: RHEUMATOID ARTHRITIS

REACTIONS (4)
  - ARTHRALGIA [None]
  - JOINT SWELLING [None]
  - OEDEMA PERIPHERAL [None]
  - VITAMIN D DECREASED [None]
